FAERS Safety Report 7747961-0 (Version None)
Quarter: 2011Q3

REPORT INFORMATION
  Report Type: 
  Country: None (occurrence: None)
  Receive Date: 20110913
  Receipt Date: 20110712
  Transmission Date: 20111222
  Serious: No
  Sender: FDA-Public Use
  Company Number: US-ALLERGAN-1109431US

PATIENT
  Age: 24 Year
  Sex: Female

DRUGS (2)
  1. LATISSE [Suspect]
     Indication: GROWTH OF EYELASHES
     Dosage: 1 GTT, QHS
     Route: 061
     Dates: end: 20110710
  2. VISINE FOR CONTACT LENS [Concomitant]
     Indication: CORRECTIVE LENS USER
     Dosage: UNK
     Route: 047

REACTIONS (4)
  - EYE COMPLICATION ASSOCIATED WITH DEVICE [None]
  - INCORRECT STORAGE OF DRUG [None]
  - VISION BLURRED [None]
  - EYE IRRITATION [None]
